FAERS Safety Report 20518997 (Version 5)
Quarter: 2022Q2

REPORT INFORMATION
  Report Type: Report from Study
  Country: US (occurrence: None)
  Receive Date: 20220225
  Receipt Date: 20220427
  Transmission Date: 20220721
  Serious: Yes (Hospitalization)
  Sender: FDA-Public Use
  Company Number: US-Eisai Medical Research-EC-2019-058239

PATIENT
  Age: 71 Year
  Sex: Male
  Weight: 79.8 kg

DRUGS (15)
  1. LENVATINIB [Suspect]
     Active Substance: LENVATINIB
     Indication: Renal cell carcinoma
     Route: 048
     Dates: start: 20190425, end: 20190508
  2. LENVATINIB [Suspect]
     Active Substance: LENVATINIB
     Route: 048
     Dates: start: 20190516
  3. LENVATINIB [Suspect]
     Active Substance: LENVATINIB
     Route: 048
     Dates: start: 20210429, end: 20220120
  4. PEMBROLIZUMAB [Suspect]
     Active Substance: PEMBROLIZUMAB
     Indication: Renal cell carcinoma
     Route: 041
     Dates: start: 20190425, end: 20210610
  5. METOPROLOL TARTRATE [Concomitant]
     Active Substance: METOPROLOL TARTRATE
  6. ROSUVASTATIN CALCIUM [Concomitant]
     Active Substance: ROSUVASTATIN CALCIUM
  7. ASPIRIN [Concomitant]
     Active Substance: ASPIRIN
  8. ONDANSETRON [Concomitant]
     Active Substance: ONDANSETRON
  9. CALCIUM [Concomitant]
     Active Substance: CALCIUM
  10. LISINOPRIL [Concomitant]
     Active Substance: LISINOPRIL
  11. TYLENOL [Concomitant]
     Active Substance: ACETAMINOPHEN
  12. ALEVE [Concomitant]
     Active Substance: NAPROXEN SODIUM
  13. TRAMADOL [Concomitant]
     Active Substance: TRAMADOL
  14. COMPAZINE [Concomitant]
     Active Substance: PROCHLORPERAZINE MALEATE
  15. INSULIN LISPRO [Concomitant]
     Active Substance: INSULIN LISPRO

REACTIONS (6)
  - Pemphigoid [Recovered/Resolved with Sequelae]
  - Ataxia [Recovered/Resolved]
  - Pulmonary embolism [Recovered/Resolved]
  - Aspiration [Recovered/Resolved]
  - Acute kidney injury [Recovered/Resolved]
  - Anaemia [Recovered/Resolved]

NARRATIVE: CASE EVENT DATE: 20190624
